FAERS Safety Report 10082321 (Version 1)
Quarter: 2014Q2

REPORT INFORMATION
  Report Type: Spontaneous
  Country: US (occurrence: None)
  Receive Date: 20140414
  Receipt Date: 20140414
  Transmission Date: 20141212
  Serious: Yes (Disabling)
  Sender: FDA-Public Use
  Company Number: None

PATIENT
  Age: 19 Year
  Sex: Male
  Weight: 70.31 kg

DRUGS (1)
  1. MEFLOQUINE [Suspect]
     Indication: MALARIA PROPHYLAXIS
     Route: 048

REACTIONS (5)
  - Stress [None]
  - Anxiety [None]
  - Depression [None]
  - Confusional state [None]
  - Panic attack [None]
